FAERS Safety Report 6270375-X (Version None)
Quarter: 2009Q3

REPORT INFORMATION
  Report Type: 
  Country: None (occurrence: None)
  Receive Date: 20090716
  Receipt Date: 20090713
  Transmission Date: 20100115
  Serious: Yes (Disabling)
  Sender: FDA-Public Use
  Company Number: D0062123A

PATIENT
  Sex: Male
  Weight: 75 kg

DRUGS (1)
  1. SEROXAT [Suspect]
     Dosage: 40MG PER DAY
     Route: 048
     Dates: start: 20070301

REACTIONS (6)
  - GINGIVAL BLEEDING [None]
  - GINGIVAL HYPERPLASIA [None]
  - GINGIVAL RECESSION [None]
  - OSTEONECROSIS [None]
  - PERIODONTITIS [None]
  - TOOTH LOSS [None]
